FAERS Safety Report 6958089-1 (Version None)
Quarter: 2010Q3

REPORT INFORMATION
  Report Type: 
  Country: None (occurrence: None)
  Receive Date: 20100831
  Receipt Date: 20100825
  Transmission Date: 20110219
  Serious: Yes (Hospitalization)
  Sender: FDA-Public Use
  Company Number: US-BRISTOL-MYERS SQUIBB COMPANY-15255474

PATIENT
  Age: 79 Year
  Sex: Male
  Weight: 75 kg

DRUGS (4)
  1. ERBITUX [Suspect]
     Indication: OESOPHAGEAL ADENOCARCINOMA
     Dates: start: 20100706, end: 20100809
  2. TAXOL [Suspect]
     Indication: OESOPHAGEAL ADENOCARCINOMA
     Dates: start: 20100706, end: 20100809
  3. CISPLATIN [Suspect]
     Indication: OESOPHAGEAL ADENOCARCINOMA
     Dates: start: 20100706, end: 20100809
  4. RADIATION THERAPY [Suspect]
     Indication: OESOPHAGEAL ADENOCARCINOMA
     Dosage: 1 DF = 50.4GY NO OF FRACTION:28 NO OF ELAPSED DAYS:38
     Dates: start: 20100706, end: 20100814

REACTIONS (3)
  - DECREASED APPETITE [None]
  - DEHYDRATION [None]
  - OESOPHAGITIS [None]
